FAERS Safety Report 8627479 (Version 2)
Quarter: 2014Q1

REPORT INFORMATION
  Report Type: Spontaneous
  Country: US (occurrence: None)
  Receive Date: 20120323
  Receipt Date: 20130305
  Transmission Date: 20141002
  Serious: Yes (Hospitalization, Other)
  Sender: FDA-Public Use
  Company Number: 163-21880-11071196

PATIENT
  Age: 76 Year
  Sex: Female
  Weight: 64.96 kg

DRUGS (10)
  1. REVLIMID [Suspect]
     Indication: PLASMA CELL MYELOMA
     Dosage: 10 MG, 1 IN 1 D, PO
     Route: 048
     Dates: start: 201101, end: 20110729
  2. VELCADE [Suspect]
     Indication: PLASMA CELL MYELOMA
     Dosage: IV
     Route: 042
     Dates: end: 20101215
  3. OXYGEN (OXYGEN) [Concomitant]
  4. DEXAMETHASONE (DEXAMETHASONE) [Concomitant]
  5. ZOMETA (ZOLEDRONIC ACID) [Concomitant]
  6. LISINOPRIL [Concomitant]
  7. ARANESP (DARBEPOETIN ALFA) [Concomitant]
  8. SENNA [Concomitant]
  9. DURAGESIC (FENTANYL) (POULTICE OR PATCH) [Concomitant]
  10. GABAPENTIN [Concomitant]

REACTIONS (9)
  - Blood creatinine increased [None]
  - Deep vein thrombosis [None]
  - Cellulitis [None]
  - Fatigue [None]
  - Renal failure [None]
  - Nausea [None]
  - Vomiting [None]
  - Anaemia [None]
  - Cellulitis [None]
